FAERS Safety Report 7748205-6 (Version None)
Quarter: 2011Q3

REPORT INFORMATION
  Report Type: 
  Country: None (occurrence: None)
  Receive Date: 20110913
  Receipt Date: 20110712
  Transmission Date: 20111222
  Serious: No
  Sender: FDA-Public Use
  Company Number: US-ELI_LILLY_AND_COMPANY-US201107004234

PATIENT
  Sex: Female

DRUGS (4)
  1. ENBREL [Concomitant]
     Indication: RHEUMATOID ARTHRITIS
     Dosage: 1 DF, OTHER
  2. AMBIEN [Concomitant]
  3. CYMBALTA [Suspect]
     Indication: DEPRESSION
     Dosage: 30 MG, QD
     Dates: start: 20090101
  4. KLONOPIN [Concomitant]
     Dosage: 0.50 DF, PRN

REACTIONS (4)
  - HEPATIC ENZYME INCREASED [None]
  - BLOOD PRESSURE INCREASED [None]
  - CHOLECYSTECTOMY [None]
  - DRUG INEFFECTIVE [None]
